FAERS Safety Report 14124604 (Version 1)
Quarter: 2017Q4

REPORT INFORMATION
  Report Type: Spontaneous
  Country: GB (occurrence: GB)
  Receive Date: 20171025
  Receipt Date: 20171025
  Transmission Date: 20180321
  Serious: Yes (Hospitalization, Disabling)
  Sender: FDA-Public Use
  Company Number: GB-TEVA-816793ACC

PATIENT
  Age: 80 Year
  Sex: Male

DRUGS (11)
  1. FLUDROCORTISONE [Concomitant]
     Active Substance: FLUDROCORTISONE
  2. SALBUTAMOL [Concomitant]
     Active Substance: ALBUTEROL
  3. PROMETHAZINE [Concomitant]
     Active Substance: PROMETHAZINE\PROMETHAZINE HYDROCHLORIDE
  4. BACLOFEN. [Suspect]
     Active Substance: BACLOFEN
     Dosage: 15 MILLIGRAM DAILY;
     Route: 048
     Dates: end: 20170927
  5. APIXABAN [Concomitant]
     Active Substance: APIXABAN
  6. FOLIC ACID. [Concomitant]
     Active Substance: FOLIC ACID
  7. SENNA [Concomitant]
     Active Substance: SENNA LEAF\SENNOSIDES\SENNOSIDES A AND B
  8. PARACETAMOL [Concomitant]
     Active Substance: ACETAMINOPHEN
  9. LEVOTHYROXINE SODIUM. [Concomitant]
     Active Substance: LEVOTHYROXINE SODIUM
  10. QUININE [Concomitant]
     Active Substance: QUININE
  11. SERTRALINE [Concomitant]
     Active Substance: SERTRALINE HYDROCHLORIDE

REACTIONS (1)
  - Dyskinesia [Recovering/Resolving]
